FAERS Safety Report 5784327-7 (Version None)
Quarter: 2008Q2

REPORT INFORMATION
  Report Type: 
  Country: None (occurrence: None)
  Receive Date: 20080624
  Receipt Date: 20070511
  Transmission Date: 20081010
  Serious: No
  Sender: FDA-Public Use
  Company Number: US-ASTRAZENECA-2007UW11303

PATIENT
  Age: 83 Year
  Sex: Male

DRUGS (5)
  1. PULMICORT [Suspect]
     Dosage: 200 MCG 200 DOSE/UNIT
     Route: 055
     Dates: start: 20040101
  2. UROXATRAL [Concomitant]
  3. NASONEX [Concomitant]
  4. ANDROGEL [Concomitant]
  5. SINGULAIR [Concomitant]

REACTIONS (3)
  - DEVICE INEFFECTIVE [None]
  - PEAK EXPIRATORY FLOW RATE DECREASED [None]
  - PHARMACEUTICAL PRODUCT COMPLAINT [None]
